FAERS Safety Report 9395025 (Version 3)
Quarter: 2014Q2

REPORT INFORMATION
  Report Type: Report from Study
  Country: CA (occurrence: CA)
  Receive Date: 20130711
  Receipt Date: 20140407
  Transmission Date: 20141212
  Serious: Yes (Hospitalization)
  Sender: FDA-Public Use
  Company Number: CA-CELGENEUS-028-21880-13061446

PATIENT
  Age: 82 Year
  Sex: Female
  Weight: 83.4 kg

DRUGS (54)
  1. REVLIMID [Suspect]
     Indication: PLASMA CELL MYELOMA
     Dosage: 5 MILLIGRAM
     Route: 048
     Dates: start: 20120705
  2. DEXAMETHASONE [Suspect]
     Indication: PLASMA CELL MYELOMA
     Dosage: 10 MILLIGRAM
     Route: 065
     Dates: start: 20120705
  3. ELOTUZUMAB [Suspect]
     Indication: PLASMA CELL MYELOMA
     Route: 065
  4. ELTROXIN [Concomitant]
     Indication: PRODUCT USED FOR UNKNOWN INDICATION
     Route: 065
     Dates: start: 2007, end: 20121201
  5. LASIX [Concomitant]
     Indication: ADVERSE EVENT
     Route: 065
     Dates: start: 2007, end: 20120830
  6. LASIX [Concomitant]
     Route: 065
     Dates: start: 20120830, end: 20120906
  7. LASIX [Concomitant]
     Route: 065
     Dates: start: 20120906
  8. RISEDRONATE [Concomitant]
     Indication: PRODUCT USED FOR UNKNOWN INDICATION
     Route: 065
     Dates: start: 2007, end: 20121231
  9. TYLENOL [Concomitant]
     Indication: PRODUCT USED FOR UNKNOWN INDICATION
     Route: 065
     Dates: start: 201203
  10. TYLENOL #2 [Concomitant]
     Indication: PRODUCT USED FOR UNKNOWN INDICATION
     Route: 065
     Dates: start: 20120705
  11. MUCOSITIS MOUTHWASH [Concomitant]
     Indication: ADVERSE EVENT
     Route: 065
     Dates: start: 20120719
  12. RANITIDINE [Concomitant]
     Indication: PRODUCT USED FOR UNKNOWN INDICATION
     Route: 065
     Dates: start: 20120719, end: 20140220
  13. RANITIDINE [Concomitant]
     Route: 065
     Dates: start: 20140221
  14. MULTIVIT [Concomitant]
     Indication: PRODUCT USED FOR UNKNOWN INDICATION
     Route: 065
     Dates: start: 20120803
  15. COLACE [Concomitant]
     Indication: PRODUCT USED FOR UNKNOWN INDICATION
     Route: 065
     Dates: start: 20120802
  16. SENOKOT [Concomitant]
     Indication: PRODUCT USED FOR UNKNOWN INDICATION
     Route: 065
     Dates: start: 20120802
  17. FERROUS FUMORATE [Concomitant]
     Indication: ADVERSE EVENT
     Route: 065
     Dates: start: 20120816, end: 20121231
  18. DIFLUCAN [Concomitant]
     Indication: PRODUCT USED FOR UNKNOWN INDICATION
     Route: 065
     Dates: start: 20120816, end: 20120822
  19. DIFLUCAN [Concomitant]
     Route: 065
     Dates: start: 20120913
  20. ATORVASTATIN [Concomitant]
     Indication: PRODUCT USED FOR UNKNOWN INDICATION
     Route: 065
     Dates: start: 2007, end: 20120726
  21. ATORVASTATIN [Concomitant]
     Route: 065
     Dates: start: 20121231
  22. METFORMIN [Concomitant]
     Indication: PRODUCT USED FOR UNKNOWN INDICATION
     Route: 065
     Dates: start: 20121226, end: 20131203
  23. METFORMIN [Concomitant]
     Route: 065
     Dates: start: 2007, end: 20121231
  24. JANUVIA [Concomitant]
     Indication: PRODUCT USED FOR UNKNOWN INDICATION
     Route: 065
     Dates: start: 20121227, end: 20131203
  25. INSULIN GLARGINE [Concomitant]
     Indication: PRODUCT USED FOR UNKNOWN INDICATION
     Route: 065
     Dates: start: 20121226, end: 20131203
  26. INSULIN GLARGINE [Concomitant]
     Route: 065
     Dates: start: 20131104
  27. WARFARIN [Concomitant]
     Indication: PRODUCT USED FOR UNKNOWN INDICATION
     Route: 065
     Dates: start: 20070910, end: 20120822
  28. WARFARIN [Concomitant]
     Route: 065
     Dates: start: 20120826, end: 20120826
  29. WARFARIN [Concomitant]
     Route: 065
     Dates: start: 20120827, end: 20121230
  30. WARFARIN [Concomitant]
     Route: 065
     Dates: start: 20121231, end: 20140124
  31. WARFARIN [Concomitant]
     Route: 065
     Dates: start: 20140125
  32. BETHONATE [Concomitant]
     Indication: ADVERSE EVENT
     Route: 065
     Dates: start: 20121231
  33. BETHONATE [Concomitant]
     Route: 065
     Dates: start: 20130214, end: 20140218
  34. DIAMICRON [Concomitant]
     Indication: PRODUCT USED FOR UNKNOWN INDICATION
     Route: 065
     Dates: start: 20130407, end: 20131203
  35. CIPROFLOXACIN [Concomitant]
     Indication: ADVERSE EVENT
     Route: 065
     Dates: start: 20121108, end: 20121110
  36. CIPROFLOXACIN [Concomitant]
     Route: 065
     Dates: start: 20130411, end: 20130418
  37. DILTIAZEM [Concomitant]
     Indication: PRODUCT USED FOR UNKNOWN INDICATION
     Route: 065
     Dates: start: 20070910, end: 20121231
  38. DILTIAZEM [Concomitant]
     Route: 065
     Dates: start: 20121104
  39. BISOPROLOL [Concomitant]
     Indication: PRODUCT USED FOR UNKNOWN INDICATION
     Route: 065
     Dates: start: 20070910, end: 20121231
  40. TAMIFLU [Concomitant]
     Indication: ADVERSE EVENT
     Route: 065
     Dates: start: 20121226, end: 20121230
  41. ACYCLOVIR [Concomitant]
     Indication: ADVERSE EVENT
     Route: 065
     Dates: start: 20120103, end: 20130110
  42. JANUMET [Concomitant]
     Indication: PRODUCT USED FOR UNKNOWN INDICATION
     Route: 065
     Dates: start: 20121217, end: 20121225
  43. JANUMET [Concomitant]
     Route: 065
     Dates: start: 20131204
  44. BENYLIN [Concomitant]
     Indication: PRODUCT USED FOR UNKNOWN INDICATION
     Route: 065
     Dates: start: 20121224, end: 20121225
  45. COLCHICINE [Concomitant]
     Indication: PRODUCT USED FOR UNKNOWN INDICATION
     Route: 065
     Dates: start: 20130607, end: 20130610
  46. NYSTATIN [Concomitant]
     Indication: ADVERSE EVENT
     Route: 048
     Dates: start: 20130610, end: 20130624
  47. CALCIUM + VITAMIN D [Concomitant]
     Indication: PRODUCT USED FOR UNKNOWN INDICATION
     Route: 065
     Dates: start: 20121231, end: 20140217
  48. ARTIFICIAL TEARS [Concomitant]
     Indication: ADVERSE EVENT
     Route: 065
     Dates: start: 20140129
  49. CALTRATE PLUS CA+ VIT D [Concomitant]
     Indication: PRODUCT USED FOR UNKNOWN INDICATION
     Route: 065
     Dates: start: 20140216
  50. LEVOTHYROXIN [Concomitant]
     Indication: PRODUCT USED FOR UNKNOWN INDICATION
     Route: 065
     Dates: start: 20121202
  51. LANTUS [Concomitant]
     Indication: PRODUCT USED FOR UNKNOWN INDICATION
     Route: 065
     Dates: start: 20131204
  52. DIGOXIN [Concomitant]
     Indication: ADVERSE EVENT
     Route: 065
     Dates: start: 20140218
  53. VIGAMOX [Concomitant]
     Indication: ADVERSE EVENT
     Route: 065
     Dates: start: 20140129, end: 20140213
  54. FUCITHALMIC [Concomitant]
     Indication: ADVERSE EVENT
     Route: 047
     Dates: start: 20140129, end: 20140213

REACTIONS (1)
  - Pericarditis [Recovered/Resolved]
